FAERS Safety Report 6249290-3 (Version None)
Quarter: 2009Q2

REPORT INFORMATION
  Report Type: 
  Country: None (occurrence: None)
  Receive Date: 20090629
  Receipt Date: 20090407
  Transmission Date: 20091009
  Serious: No
  Sender: FDA-Public Use
  Company Number: US-BRISTOL-MYERS SQUIBB COMPANY-14568026

PATIENT
  Age: 54 Year
  Sex: Female

DRUGS (5)
  1. SPRYCEL [Suspect]
     Indication: CHRONIC MYELOID LEUKAEMIA
     Route: 048
     Dates: start: 20080924, end: 20081008
  2. LASIX [Concomitant]
     Dosage: 1DF=20(UNITS NOT SPECIFIED)
  3. LISINOPRIL [Concomitant]
     Dosage: 1DF=20(UNITS NOT SPECIFIED)
  4. METOPROLOL TARTRATE [Concomitant]
     Dosage: 1DF=25(UNITS NOT SPECIFIED) METOPROLOL ER
     Route: 048
  5. MULTI-VITAMIN [Concomitant]

REACTIONS (2)
  - OEDEMA PERIPHERAL [None]
  - URTICARIA [None]
